FAERS Safety Report 7111775 (Version 4)
Quarter: 2014Q4

REPORT INFORMATION
  Report Type: Report from Study
  Country: JP (occurrence: JP)
  Receive Date: 20090911
  Receipt Date: 20141112
  Transmission Date: 20150529
  Serious: Yes (Hospitalization)
  Sender: FDA-Public Use
  Company Number: PHHO2009JP08704

PATIENT
  Age: 72 Year
  Sex: Male
  Weight: 63 kg

DRUGS (7)
  1. HARNAL [Concomitant]
     Active Substance: TAMSULOSIN HYDROCHLORIDE
     Indication: BENIGN PROSTATIC HYPERPLASIA
     Dosage: UNK
     Dates: start: 2000
  2. STI571 [Suspect]
     Active Substance: IMATINIB MESYLATE
     Indication: CHRONIC MYELOID LEUKAEMIA
     Dosage: 400 MG, DAILY
     Route: 048
     Dates: start: 20071213, end: 20071223
  3. STI571 [Suspect]
     Active Substance: IMATINIB MESYLATE
     Dosage: UNK
     Dates: start: 20071225, end: 20071225
  4. STI571 [Suspect]
     Active Substance: IMATINIB MESYLATE
     Dosage: 400 MG, DAILY
     Dates: start: 20071226, end: 20090708
  5. AMN107 [Suspect]
     Active Substance: NILOTINIB
     Indication: CHRONIC MYELOID LEUKAEMIA
     Dosage: 800 MG, UNK
     Route: 048
     Dates: start: 20090710
  6. ISODINE [Concomitant]
     Active Substance: POVIDONE-IODINE
     Indication: NASOPHARYNGITIS
  7. STI571 [Suspect]
     Active Substance: IMATINIB MESYLATE
     Dosage: 800 MG, DAILY
     Route: 048
     Dates: start: 20071224, end: 20071224

REACTIONS (8)
  - Malignant neoplasm progression [Not Recovered/Not Resolved]
  - Venous thrombosis limb [Unknown]
  - Hypophosphataemia [Unknown]
  - Periarthritis [Unknown]
  - Blast crisis in myelogenous leukaemia [Not Recovered/Not Resolved]
  - Drug ineffective [Not Recovered/Not Resolved]
  - Pain in extremity [Unknown]
  - Gene mutation [Not Recovered/Not Resolved]

NARRATIVE: CASE EVENT DATE: 20090708
